FAERS Safety Report 23028631 (Version 1)
Quarter: 2023Q4

REPORT INFORMATION
  Report Type: Report from Study
  Country: SE (occurrence: NO)
  Receive Date: 20231004
  Receipt Date: 20231004
  Transmission Date: 20240109
  Serious: Yes (Hospitalization, Other)
  Sender: FDA-Public Use
  Company Number: SE-ASTELLAS-2023US021523

PATIENT
  Age: 46 Year
  Sex: Male

DRUGS (1)
  1. TACROLIMUS [Suspect]
     Active Substance: TACROLIMUS
     Indication: Product used for unknown indication
     Dosage: UNK UNK, UNKNOWN FREQ.
     Route: 065
     Dates: start: 20180512

REACTIONS (13)
  - Pulmonary embolism [Recovered/Resolved]
  - Syncope [Recovered/Resolved]
  - Viral infection [Recovered/Resolved]
  - Bacterial infection [Recovered/Resolved]
  - Bacterial infection [Recovered/Resolved]
  - Leukopenia [Recovered/Resolved]
  - Bacterial infection [Recovered/Resolved]
  - Bacterial infection [Recovered/Resolved]
  - Hyperkalaemia [Recovered/Resolved]
  - Bacterial infection [Recovered/Resolved]
  - Bacterial infection [Recovered/Resolved]
  - Viral infection [Recovered/Resolved]
  - Bronchostenosis [Recovered/Resolved]

NARRATIVE: CASE EVENT DATE: 20180704
